FAERS Safety Report 4381524-2 (Version None)
Quarter: 2004Q2

REPORT INFORMATION
  Report Type: 
  Country: None (occurrence: None)
  Receive Date: 20040621
  Receipt Date: 20040607
  Transmission Date: 20050107
  Serious: Yes (Hospitalization)
  Sender: FDA-Public Use
  Company Number: PT-GLAXOSMITHKLINE-B0336143A

PATIENT
  Age: 39 Year
  Sex: Male
  Weight: 61 kg

DRUGS (7)
  1. COMBIVIR [Suspect]
     Indication: HIV INFECTION
     Route: 048
     Dates: start: 19970101
  2. ISONIAZID [Suspect]
     Indication: TUBERCULOSIS PROPHYLAXIS
     Route: 048
     Dates: start: 20040503, end: 20040505
  3. RITONAVIR [Suspect]
     Indication: HIV INFECTION
     Route: 048
     Dates: start: 20000101
  4. INDINAVIR [Suspect]
     Indication: HIV INFECTION
     Dates: start: 20000101
  5. WARFARIN SODIUM [Concomitant]
     Route: 048
     Dates: start: 19990101
  6. PIRIDOXINA [Concomitant]
     Route: 048
     Dates: start: 20040505
  7. DARBEPOETIN ALFA [Concomitant]
     Route: 042
     Dates: start: 20020101

REACTIONS (2)
  - CONFUSIONAL STATE [None]
  - DRUG INTERACTION [None]
